FAERS Safety Report 9630567 (Version 2)
Quarter: 2013Q4

REPORT INFORMATION
  Report Type: Report from Study
  Country: US (occurrence: US)
  Receive Date: 20131018
  Receipt Date: 20131024
  Transmission Date: 20140711
  Serious: Yes (Hospitalization)
  Sender: FDA-Public Use
  Company Number: PHHO2013US013399

PATIENT
  Age: 62 Year
  Sex: Female
  Weight: 68.93 kg

DRUGS (5)
  1. MYFORTIC [Suspect]
     Indication: RENAL TRANSPLANT
     Dosage: UNK
     Dates: start: 20130815
  2. COMPARATOR PROGRAF [Suspect]
     Indication: RENAL TRANSPLANT
     Dosage: 1 MG Q AM, 1 MG Q PM
     Route: 048
     Dates: start: 20130815
  3. CERTICAN [Suspect]
     Indication: RENAL TRANSPLANT
     Dosage: 0.5 MG, BID
     Route: 048
     Dates: start: 20130815, end: 20130815
  4. PREDNISONE [Concomitant]
     Indication: RENAL TRANSPLANT
     Dosage: 10 MG, QD
  5. BELATACEPT [Concomitant]

REACTIONS (2)
  - Urine output decreased [Unknown]
  - Pyrexia [Unknown]
